FAERS Safety Report 6980188-9 (Version None)
Quarter: 2010Q3

REPORT INFORMATION
  Report Type: 
  Country: None (occurrence: None)
  Receive Date: 20100909
  Receipt Date: 20100826
  Transmission Date: 20110219
  Serious: Yes (Life-Threatening, Other)
  Sender: FDA-Public Use
  Company Number: 2010P1001139

PATIENT
  Sex: Female

DRUGS (6)
  1. FENTANYL [Suspect]
     Indication: ENDOTRACHEAL INTUBATION
     Dosage: IV
     Route: 042
     Dates: start: 20100724
  2. ATROPINE [Concomitant]
  3. SUXAMETHONIUM [Concomitant]
  4. VITAMIN K TAB [Concomitant]
  5. CAFFEINE [Concomitant]
  6. CEFOTAXIME SODIUM [Concomitant]

REACTIONS (7)
  - BRADYCARDIA [None]
  - CHEST X-RAY ABNORMAL [None]
  - MUSCLE RIGIDITY [None]
  - OESOPHAGEAL PERFORATION [None]
  - OXYGEN SATURATION DECREASED [None]
  - PNEUMOTHORAX [None]
  - PULMONARY HAEMORRHAGE [None]
